FAERS Safety Report 8539467-6 (Version None)
Quarter: 2012Q3

REPORT INFORMATION
  Report Type: 
  Country: None (occurrence: None)
  Receive Date: 20120726
  Receipt Date: 20120718
  Transmission Date: 20120928
  Serious: Yes (Other)
  Sender: FDA-Public Use
  Company Number: US-JNJFOC-20120710215

PATIENT
  Age: 47 Year
  Sex: Female

DRUGS (2)
  1. CELEBREX [Concomitant]
     Indication: RHEUMATOID ARTHRITIS
     Route: 065
  2. REMICADE [Suspect]
     Indication: RHEUMATOID ARTHRITIS
     Route: 042

REACTIONS (5)
  - COLITIS ULCERATIVE [None]
  - INFUSION RELATED REACTION [None]
  - BLOOD PRESSURE INCREASED [None]
  - FLUSHING [None]
  - DYSPNOEA [None]
